FAERS Safety Report 22044188 (Version 1)
Quarter: 2023Q1

REPORT INFORMATION
  Report Type: Spontaneous
  Country: GB (occurrence: GB)
  Receive Date: 20230228
  Receipt Date: 20230228
  Transmission Date: 20230417
  Serious: Yes (Other)
  Sender: FDA-Public Use
  Company Number: None

PATIENT
  Age: 35 Year
  Sex: Female
  Weight: 92 kg

DRUGS (12)
  1. OMEPRAZOLE [Suspect]
     Active Substance: OMEPRAZOLE
     Route: 048
     Dates: start: 20220427
  2. ACTIVON TULLE [Concomitant]
     Dosage: USE AS DIRECTED
     Dates: start: 20221209, end: 20221216
  3. AZATHIOPRINE [Concomitant]
     Active Substance: AZATHIOPRINE
     Dosage: TO BE TAKEN AS PER RHEUMATOLOGY ADVICE - INCREA.
     Dates: start: 20220802
  4. AMOXICILLIN\CLAVULANATE POTASSIUM [Concomitant]
     Active Substance: AMOXICILLIN\CLAVULANATE POTASSIUM
     Dosage: 3 SEPARATED DOSES
     Dates: start: 20221128, end: 20221205
  5. CHOLECALCIFEROL [Concomitant]
     Active Substance: CHOLECALCIFEROL
     Dosage: USE AS DIRECTED
     Dates: start: 20220427
  6. FERROUS FUMARATE [Concomitant]
     Active Substance: FERROUS FUMARATE
     Dosage: WITH VITAMIN WITH CAN INCREASE T...
     Dates: start: 20221108
  7. FLUCLOXACILLIN [Concomitant]
     Active Substance: FLUCLOXACILLIN
     Dosage: 4 SEPARATED DOSES
     Dates: start: 20221209, end: 20221216
  8. FOLIC ACID [Concomitant]
     Active Substance: FOLIC ACID
     Dates: start: 20220427
  9. IMURAN [Concomitant]
     Active Substance: AZATHIOPRINE
     Dates: start: 20220427
  10. KELHALE [Concomitant]
     Dosage: 2 SEPARATED DOSES
     Route: 048
     Dates: start: 20220427
  11. ALBUTEROL [Concomitant]
     Active Substance: ALBUTEROL
     Indication: Asthma
     Route: 048
     Dates: start: 20220427
  12. URSODIOL [Concomitant]
     Active Substance: URSODIOL
     Dosage: AT NIGHT
     Dates: start: 20220427

REACTIONS (1)
  - Autoimmune neutropenia [Recovered/Resolved]
